FAERS Safety Report 4316049-3 (Version None)
Quarter: 2004Q1

REPORT INFORMATION
  Report Type: 
  Country: None (occurrence: None)
  Receive Date: 20040312
  Receipt Date: 20031020
  Transmission Date: 20041129
  Serious: Yes (Hospitalization, Disabling, Other)
  Sender: FDA-Public Use
  Company Number: PHNR2003AU01508

PATIENT
  Age: 77 Year
  Sex: Female

DRUGS (4)
  1. SANDOSTATIN [Suspect]
     Indication: ACROMEGALY
     Dosage: 100 UG, UNK
     Route: 058
     Dates: start: 20030827
  2. SANDOSTATIN LAR [Suspect]
     Indication: ACROMEGALY
     Dosage: 20 MG, ONCE/SINGLE
     Dates: start: 20030910, end: 20031103
  3. ATORVASTATIN [Concomitant]
     Dosage: 10 MG, UNK
  4. PERINDOPRIL [Concomitant]
     Dosage: 20 MG, UNK

REACTIONS (2)
  - ABDOMINAL DISCOMFORT [None]
  - FEELING ABNORMAL [None]
